FAERS Safety Report 4749296-7 (Version None)
Quarter: 2005Q3

REPORT INFORMATION
  Report Type: 
  Country: None (occurrence: None)
  Receive Date: 20050812
  Receipt Date: 20050523
  Transmission Date: 20060218
  Serious: Yes (Hospitalization)
  Sender: FDA-Public Use
  Company Number: 405719

PATIENT
  Age: 45 Year
  Sex: Male

DRUGS (3)
  1. PEGASYS [Suspect]
  2. COPEGUS [Suspect]
     Dosage: ORAL
     Route: 048
  3. PEG-INTRON [Suspect]

REACTIONS (6)
  - ANAEMIA [None]
  - DYSPNOEA [None]
  - MALAISE [None]
  - SPLENOMEGALY [None]
  - THROMBOCYTOPENIA [None]
  - VIRAL LOAD INCREASED [None]
